FAERS Safety Report 10280080 (Version 1)
Quarter: 2014Q3

REPORT INFORMATION
  Report Type: Spontaneous
  Country: US (occurrence: US)
  Receive Date: 20140707
  Receipt Date: 20140707
  Transmission Date: 20150326
  Serious: Yes (Other)
  Sender: FDA-Public Use
  Company Number: US-AMGEN-USASP2014049694

PATIENT
  Age: 53 Year
  Sex: Female

DRUGS (3)
  1. ZANTAC [Concomitant]
     Active Substance: RANITIDINE HYDROCHLORIDE
     Dosage: UNK
  2. VECTIBIX [Suspect]
     Active Substance: PANITUMUMAB
     Indication: METASTASES TO LIVER
  3. VECTIBIX [Suspect]
     Active Substance: PANITUMUMAB
     Indication: COLORECTAL CANCER METASTATIC
     Dosage: UNK UNK, ONE EVERY TWO WEEKS FOR FOUR MONTHS
     Route: 065

REACTIONS (10)
  - Arthropod bite [Unknown]
  - Dry skin [Unknown]
  - Rash [Unknown]
  - Blister [Unknown]
  - Hepatic neoplasm [Unknown]
  - Feeling hot [Unknown]
  - Skin discolouration [Unknown]
  - Dermatitis contact [Unknown]
  - Skin injury [Unknown]
  - Pruritus [Unknown]
